FAERS Safety Report 8579089-4 (Version None)
Quarter: 2012Q3

REPORT INFORMATION
  Report Type: 
  Country: None (occurrence: None)
  Receive Date: 20120808
  Receipt Date: 20120730
  Transmission Date: 20120928
  Serious: Yes (Hospitalization)
  Sender: FDA-Public Use
  Company Number: TR-EISAI INC-E3810-05755-SPO-TR

PATIENT
  Age: 46 Year
  Sex: Male

DRUGS (2)
  1. RABEPRAZOLE SODIUM [Suspect]
     Route: 048
  2. RABEPRAZOLE SODIUM [Suspect]
     Route: 048

REACTIONS (1)
  - CHOLESTATIC LIVER INJURY [None]
